FAERS Safety Report 4561900-5 (Version None)
Quarter: 2005Q1

REPORT INFORMATION
  Report Type: 
  Country: None (occurrence: None)
  Receive Date: 20050126
  Receipt Date: 20041117
  Transmission Date: 20050727
  Serious: Yes (Hospitalization)
  Sender: FDA-Public Use
  Company Number: FR-MERCK-0411FRA00070

PATIENT
  Age: 50 Year
  Sex: Male
  Weight: 110 kg

DRUGS (6)
  1. HYZAAR [Suspect]
     Indication: HYPERTENSION
     Route: 048
     Dates: start: 20030601, end: 20041001
  2. HYZAAR [Suspect]
     Route: 048
     Dates: start: 20041102, end: 20041112
  3. AMLODIPINE MALEATE [Concomitant]
     Indication: HYPERTENSION
     Route: 048
     Dates: start: 20041102, end: 20041112
  4. METFORMIN [Concomitant]
     Indication: DIABETES MELLITUS
     Route: 048
     Dates: start: 20041022, end: 20041113
  5. POTASSIUM CHLORIDE [Concomitant]
     Route: 048
     Dates: start: 20041101, end: 20041112
  6. INSULIN [Concomitant]
     Indication: DIABETES MELLITUS
     Route: 058
     Dates: start: 20041022

REACTIONS (2)
  - DIABETES MELLITUS [None]
  - GLUCOSE-6-PHOSPHATE DEHYDROGENASE DEFICIENCY [None]
